FAERS Safety Report 17735373 (Version 2)
Quarter: 2020Q2

REPORT INFORMATION
  Report Type: Report from Study
  Country: IT (occurrence: IT)
  Receive Date: 20200501
  Receipt Date: 20200515
  Transmission Date: 20200714
  Serious: Yes (Hospitalization)
  Sender: FDA-Public Use
  Company Number: IT-PFIZER INC-2020171852

PATIENT
  Age: 39 Year
  Sex: Male

DRUGS (2)
  1. AUGMENTIN [Suspect]
     Active Substance: AMOXICILLIN\CLAVULANATE POTASSIUM
     Indication: TOOTHACHE
     Dosage: 1 DF, 1X/DAY
     Route: 048
     Dates: start: 20200203, end: 20200205
  2. CHAMPIX [Suspect]
     Active Substance: VARENICLINE TARTRATE
     Indication: NICOTINE DEPENDENCE
     Dosage: 1 DF, 1X/DAY
     Route: 048
     Dates: start: 20200129, end: 20200205

REACTIONS (3)
  - Erythema [Recovering/Resolving]
  - Urticaria [Recovering/Resolving]
  - Eye oedema [Recovering/Resolving]

NARRATIVE: CASE EVENT DATE: 20200205
